FAERS Safety Report 18807017 (Version 1)
Quarter: 2021Q1

REPORT INFORMATION
  Report Type: Spontaneous
  Country: FR (occurrence: FR)
  Receive Date: 20210129
  Receipt Date: 20210129
  Transmission Date: 20210419
  Serious: Yes (Other)
  Sender: FDA-Public Use
  Company Number: FR-AUROBINDO-AUR-APL-2021-003746

PATIENT
  Age: 33 Year
  Sex: Male

DRUGS (5)
  1. CLOXACILLINE PANPHARMA [Suspect]
     Active Substance: CLOXACILLIN
     Indication: STAPHYLOCOCCAL INFECTION
     Dosage: 2 GRAM, ONCE A DAY
     Route: 042
     Dates: start: 20201224
  2. PARACETAMOL [Suspect]
     Active Substance: ACETAMINOPHEN
     Indication: PAIN
     Dosage: UNK
     Route: 048
     Dates: start: 20201224
  3. CATAPRESSAN [Suspect]
     Active Substance: CLONIDINE
     Indication: HYPERTENSION
     Dosage: 4 DOSAGE FORM, ONCE A DAY
     Route: 048
     Dates: start: 20201224
  4. TERCIAN [Suspect]
     Active Substance: CYAMEMAZINE
     Indication: ANXIETY
     Dosage: 1 DOSAGE FORM, ONCE A DAY
     Route: 048
     Dates: start: 20201224
  5. VALIUM [Suspect]
     Active Substance: DIAZEPAM
     Indication: ANXIETY
     Dosage: 1 DOSAGE FORM, ONCE A DAY
     Route: 048
     Dates: start: 20201224

REACTIONS (3)
  - Cholestasis [Not Recovered/Not Resolved]
  - Hypertransaminasaemia [Not Recovered/Not Resolved]
  - Hepatocellular injury [Not Recovered/Not Resolved]

NARRATIVE: CASE EVENT DATE: 20201228
